FAERS Safety Report 18572611 (Version 1)
Quarter: 2020Q4

REPORT INFORMATION
  Report Type: Report from Study
  Country: None (occurrence: IT)
  Receive Date: 20201203
  Receipt Date: 20201203
  Transmission Date: 20210114
  Serious: Yes (Other)
  Sender: FDA-Public Use
  Company Number: IT-ABBVIE-20K-083-3670640-00

PATIENT
  Age: 78 Year
  Sex: Male

DRUGS (2)
  1. DUODOPA [Suspect]
     Active Substance: CARBIDOPA\LEVODOPA
     Indication: PARKINSON^S DISEASE
     Dosage: DAILY DOSE: 1066 M,; PUMP SETTING: MD: 8+3 CR: 3,1 (13H), ED: 2,5
     Route: 050
     Dates: start: 20181016
  2. DUODOPA [Suspect]
     Active Substance: CARBIDOPA\LEVODOPA

REACTIONS (3)
  - Speech disorder [Unknown]
  - Disorientation [Unknown]
  - Hemiparesis [Unknown]

NARRATIVE: CASE EVENT DATE: 202011
